FAERS Safety Report 12198744 (Version 1)
Quarter: 2016Q1

REPORT INFORMATION
  Report Type: Spontaneous
  Country: US (occurrence: None)
  Receive Date: 20160321
  Receipt Date: 20160321
  Transmission Date: 20160526
  Serious: No
  Sender: FDA-Public Use
  Company Number: None

PATIENT
  Age: 43 Year
  Sex: Male
  Weight: 94.35 kg

DRUGS (2)
  1. BUPROPION XL [Concomitant]
     Active Substance: BUPROPION
  2. EFFEXOR XR [Suspect]
     Active Substance: VENLAFAXINE HYDROCHLORIDE
     Indication: DEPRESSION
     Route: 048
     Dates: start: 20150820, end: 20160317

REACTIONS (3)
  - Heat exhaustion [None]
  - Hyperhidrosis [None]
  - Emotional distress [None]

NARRATIVE: CASE EVENT DATE: 20160317
